FAERS Safety Report 5274138-3 (Version None)
Quarter: 2007Q1

REPORT INFORMATION
  Report Type: 
  Country: None (occurrence: None)
  Receive Date: 20070323
  Receipt Date: 20070314
  Transmission Date: 20070707
  Serious: Yes (Hospitalization)
  Sender: FDA-Public Use
  Company Number: US-ABBOTT-06P-163-0353215-00

PATIENT
  Sex: Male
  Weight: 58.112 kg

DRUGS (4)
  1. HUMIRA [Suspect]
     Indication: CROHN'S DISEASE
     Route: 058
     Dates: start: 20051201, end: 20061201
  2. HUMIRA [Suspect]
     Route: 058
     Dates: start: 20070110, end: 20070110
  3. ANTI REJECTION MEDICATIONS [Concomitant]
     Indication: RENAL TRANSPLANT
  4. PENTASA [Concomitant]
     Indication: DRUG USE FOR UNKNOWN INDICATION

REACTIONS (8)
  - CHILLS [None]
  - COUGH [None]
  - DIARRHOEA [None]
  - DISORIENTATION [None]
  - DYSPNOEA [None]
  - LYMPHADENOPATHY [None]
  - PULMONARY OEDEMA [None]
  - PYREXIA [None]
